FAERS Safety Report 4412627-1 (Version None)
Quarter: 2004Q2

REPORT INFORMATION
  Report Type: 
  Country: None (occurrence: None)
  Receive Date: 20040630
  Receipt Date: 20040303
  Transmission Date: 20050107
  Serious: No
  Sender: FDA-Public Use
  Company Number: 04P-163-0252083-00

PATIENT
  Age: 63 Year
  Sex: Female
  Weight: 78.4723 kg

DRUGS (9)
  1. HUMIRA [Suspect]
     Indication: RHEUMATOID ARTHRITIS
     Dosage: 40 MG, 1 IN 2 WK; SUBCUTANEOUS (SEE IMAGE)
     Route: 058
     Dates: start: 20030801
  2. ROFECOXIB [Concomitant]
  3. PREDNISONE [Concomitant]
  4. FLUTICASONE PROPIONATE [Concomitant]
  5. SALMETEROL XINAFOATE [Concomitant]
  6. LOSARTAN POTASSIUM [Concomitant]
  7. RABEPRAZOLE SODIUM [Concomitant]
  8. LEFLUNOMIDE [Concomitant]
  9. RISENDRONATE SODIUM [Concomitant]

REACTIONS (1)
  - INJECTION SITE HAEMORRHAGE [None]
